FAERS Safety Report 16924664 (Version 1)
Quarter: 2019Q4

REPORT INFORMATION
  Report Type: Spontaneous
  Country: US (occurrence: US)
  Receive Date: 20191016
  Receipt Date: 20191016
  Transmission Date: 20200122
  Serious: No
  Sender: FDA-Public Use
  Company Number: US-PFIZER INC-2019441998

PATIENT
  Age: 32 Year
  Sex: Female

DRUGS (3)
  1. EUCRISA [Suspect]
     Active Substance: CRISABOROLE
     Indication: DERMATITIS ATOPIC
     Dosage: (1-2 TIMES A DAY FOR UP TO TWO WEEKS)
     Dates: start: 2018
  2. PREDNISONE. [Concomitant]
     Active Substance: PREDNISONE
     Dosage: UNK
  3. EUCRISA [Suspect]
     Active Substance: CRISABOROLE
     Dosage: (SOMETIMES 4 TIMES A DAY FOR UP TO TWO WEEKS)
     Dates: start: 2018

REACTIONS (2)
  - Condition aggravated [Unknown]
  - Off label use [Unknown]
